FAERS Safety Report 4883691-0 (Version None)
Quarter: 2006Q1

REPORT INFORMATION
  Report Type: 
  Country: None (occurrence: None)
  Receive Date: 20060113
  Receipt Date: 20051229
  Transmission Date: 20060701
  Serious: Yes (Life-Threatening, Hospitalization, Other)
  Sender: FDA-Public Use
  Company Number: US200601000786

PATIENT
  Sex: 0

DRUGS (4)
  1. HUMALOG [Suspect]
     Dosage: UNK, TRANSPLACENTAL
     Route: 064
     Dates: start: 19950101, end: 19960101
  2. HUMULIN R [Suspect]
     Dosage: UNK, TRANSPLACENTAL
     Route: 064
     Dates: end: 19950101
  3. HUMULIN N [Suspect]
     Dosage: UNK, TRANSPLACENTAL
     Route: 064
     Dates: end: 19950101
  4. PRENATAL VITAMINS (ASCORBIC ACID, BIOTIN, MINERALS NOS, NICOTINIC ACID [Concomitant]

REACTIONS (8)
  - CAESAREAN SECTION [None]
  - DRUG EXPOSURE DURING PREGNANCY [None]
  - DRUG EXPOSURE VIA BREAST MILK [None]
  - ECZEMA [None]
  - FOETAL HEART RATE DECREASED [None]
  - FOETAL MOVEMENTS DECREASED [None]
  - PREMATURE BABY [None]
  - RESUSCITATION [None]
